FAERS Safety Report 7812040-0 (Version None)
Quarter: 2011Q4

REPORT INFORMATION
  Report Type: 
  Country: None (occurrence: None)
  Receive Date: 20111013
  Receipt Date: 20110930
  Transmission Date: 20120403
  Serious: Yes (Death)
  Sender: FDA-Public Use
  Company Number: JP-ROCHE-761656

PATIENT
  Sex: Female

DRUGS (21)
  1. ROHYPNOL [Concomitant]
     Route: 048
     Dates: start: 20100726
  2. ACTEMRA [Suspect]
     Indication: RHEUMATOID ARTHRITIS
     Route: 041
     Dates: start: 20090418, end: 20090418
  3. ACTEMRA [Suspect]
     Route: 041
     Dates: start: 20090710, end: 20090710
  4. LAFUTIDINE [Suspect]
     Indication: GASTRITIS
     Route: 048
  5. PREDNISOLONE [Concomitant]
     Route: 048
  6. ACTEMRA [Suspect]
     Route: 041
     Dates: start: 20090904, end: 20090904
  7. ACTEMRA [Suspect]
     Route: 041
     Dates: start: 20091002, end: 20100722
  8. LIVALO [Concomitant]
     Route: 048
     Dates: start: 20100726
  9. VOLTAREN [Concomitant]
     Dosage: DOSE FORM: SUPPOSITORIAE RECTALE
     Route: 054
  10. FOLIC ACID [Concomitant]
     Route: 048
  11. SUCRALFATE [Concomitant]
     Dosage: DOSAGE FORM: MINUTE GRAINS.
     Route: 048
  12. ONEALFA [Concomitant]
     Route: 048
  13. KETOPROFEN [Concomitant]
     Dosage: DOSE FORM: TAPE
     Route: 062
  14. ACTEMRA [Suspect]
     Route: 041
     Dates: start: 20090515, end: 20090515
  15. ACTEMRA [Suspect]
     Route: 041
     Dates: start: 20090807, end: 20090807
  16. ASPARA-CA [Concomitant]
     Route: 048
  17. METHOTREXATE [Concomitant]
     Route: 048
  18. ACTEMRA [Suspect]
     Route: 041
     Dates: start: 20090612, end: 20090612
  19. PURSENNID [Concomitant]
     Route: 048
     Dates: start: 20100726
  20. ZOLPIDEM [Concomitant]
     Route: 048
  21. SALCOAT [Concomitant]
     Route: 048

REACTIONS (2)
  - AORTIC DISSECTION [None]
  - CEREBRAL INFARCTION [None]
